FAERS Safety Report 20740928 (Version 1)
Quarter: 2022Q2

REPORT INFORMATION
  Report Type: Spontaneous
  Country: US (occurrence: US)
  Receive Date: 20220422
  Receipt Date: 20220422
  Transmission Date: 20220721
  Serious: No
  Sender: FDA-Public Use
  Company Number: US-LANNETT COMPANY, INC.-US-2021LAN000304

PATIENT
  Age: 25 Year
  Sex: Female

DRUGS (7)
  1. LEVOTHYROXINE SODIUM [Suspect]
     Active Substance: LEVOTHYROXINE SODIUM
     Indication: Hypothyroidism
     Dosage: UNK (SWITCHED BACK TO NP THYROID IN FEB/2021)
     Route: 048
     Dates: start: 2020
  2. NP THYROID [Suspect]
     Active Substance: LEVOTHYROXINE\LIOTHYRONINE
     Indication: Hypothyroidism
     Dosage: 90 MG, QD (SWITCHED TO LEVOTHYROXINE IN 2020)
     Route: 048
     Dates: start: 2018, end: 2020
  3. NP THYROID [Suspect]
     Active Substance: LEVOTHYROXINE\LIOTHYRONINE
     Dosage: 60 MG, BID
     Route: 048
     Dates: start: 202102, end: 2021
  4. NP THYROID [Suspect]
     Active Substance: LEVOTHYROXINE\LIOTHYRONINE
     Dosage: 60 MG, BID (RESTARTED)
     Route: 048
     Dates: start: 202104, end: 2021
  5. NP THYROID [Suspect]
     Active Substance: LEVOTHYROXINE\LIOTHYRONINE
     Dosage: 210 MG DAILY (SWITCHED TO NP THYROID 120 MG TABLETS AND 90 MG TABLETS)
     Route: 048
     Dates: start: 20210716
  6. ARMOUR THYROID [Suspect]
     Active Substance: THYROID, PORCINE
     Indication: Hypothyroidism
     Dosage: 60 MG, UNK
     Route: 048
     Dates: start: 202103, end: 2021
  7. PROGESTERONE [Concomitant]
     Active Substance: PROGESTERONE
     Indication: Product used for unknown indication
     Dosage: UNK

REACTIONS (6)
  - Fatigue [Not Recovered/Not Resolved]
  - Illness [Not Recovered/Not Resolved]
  - Depression [Not Recovered/Not Resolved]
  - Weight increased [Not Recovered/Not Resolved]
  - Tri-iodothyronine decreased [Not Recovered/Not Resolved]
  - Anxiety [Not Recovered/Not Resolved]

NARRATIVE: CASE EVENT DATE: 20210101
